FAERS Safety Report 12711837 (Version 2)
Quarter: 2016Q3

REPORT INFORMATION
  Report Type: Spontaneous
  Country: US (occurrence: US)
  Receive Date: 20160902
  Receipt Date: 20160902
  Transmission Date: 20161109
  Serious: No
  Sender: FDA-Public Use
  Company Number: US-AMARIN PHARMA, INC.-2016AMR000077

PATIENT
  Age: 77 Year
  Sex: Female
  Weight: 53.57 kg

DRUGS (1)
  1. VASCEPA [Suspect]
     Active Substance: ICOSAPENT ETHYL
     Indication: GLAUCOMA
     Route: 048
     Dates: start: 20160415

REACTIONS (2)
  - Off label use [Not Recovered/Not Resolved]
  - Intentional underdose [Not Recovered/Not Resolved]

NARRATIVE: CASE EVENT DATE: 20160415
